FAERS Safety Report 21603470 (Version 1)
Quarter: 2022Q4

REPORT INFORMATION
  Report Type: Spontaneous
  Country: US (occurrence: None)
  Receive Date: 20221116
  Receipt Date: 20221116
  Transmission Date: 20230113
  Serious: No
  Sender: FDA-Public Use
  Company Number: None

PATIENT
  Age: 31 Year
  Sex: Female
  Weight: 75.15 kg

DRUGS (3)
  1. PAXLOVID [Suspect]
     Active Substance: NIRMATRELVIR\RITONAVIR
     Indication: COVID-19
     Dosage: FREQUENCY : TWICE A DAY;?
     Route: 048
     Dates: start: 20220716, end: 20220721
  2. Meclizine 25mg [Concomitant]
     Dates: start: 20210409
  3. DULOXETINE [Concomitant]
     Active Substance: DULOXETINE
     Dates: start: 20220617

REACTIONS (1)
  - Urticaria [None]

NARRATIVE: CASE EVENT DATE: 20220716
